FAERS Safety Report 12145308 (Version 1)
Quarter: 2016Q1

REPORT INFORMATION
  Report Type: Spontaneous
  Country: US (occurrence: None)
  Receive Date: 20160303
  Receipt Date: 20160303
  Transmission Date: 20160526
  Serious: No
  Sender: FDA-Public Use
  Company Number: None

PATIENT
  Age: 80 Year
  Sex: Female

DRUGS (11)
  1. LETROZOLE. [Concomitant]
     Active Substance: LETROZOLE
  2. MELOXICAM. [Concomitant]
     Active Substance: MELOXICAM
  3. COENZYME Q10 [Concomitant]
     Active Substance: UBIDECARENONE
  4. CALCIUM [Concomitant]
     Active Substance: CALCIUM
  5. VITAMIN B COMPLEX [Concomitant]
     Active Substance: CYANOCOBALAMIN\DEXPANTHENOL\NIACINAMIDE\PYRIDOXINE HYDROCHLORIDE\RIBOFLAVIN 5^-PHOSPHATE SODIUM\THIAMINE HYDROCHLORIDE\VITAMIN B COMPLEX
  6. SIMVASTATIN. [Concomitant]
     Active Substance: SIMVASTATIN
  7. FISH OIL [Concomitant]
     Active Substance: FISH OIL
  8. IBRANCE [Suspect]
     Active Substance: PALBOCICLIB
     Indication: BREAST CANCER FEMALE
     Dosage: 21DS 7OFF
     Route: 048
     Dates: start: 20160205
  9. VITAMIN E [Concomitant]
     Active Substance: .ALPHA.-TOCOPHEROL
  10. VITAMIN C [Concomitant]
     Active Substance: ASCORBIC ACID
  11. VITAMIN D [Concomitant]
     Active Substance: CHOLECALCIFEROL

REACTIONS (1)
  - Epistaxis [None]

NARRATIVE: CASE EVENT DATE: 20160223
